FAERS Safety Report 4870283-2 (Version None)
Quarter: 2005Q4

REPORT INFORMATION
  Report Type: 
  Country: None (occurrence: None)
  Receive Date: 20051228
  Receipt Date: 20051215
  Transmission Date: 20060501
  Serious: Yes (Disabling)
  Sender: FDA-Public Use
  Company Number: GB200511003034

PATIENT
  Age: 59 Year
  Sex: Female

DRUGS (1)
  1. FORTEO [Suspect]
     Dosage: 20 UG, SUBCUTANEOUS
     Route: 058
     Dates: start: 20051128, end: 20051129

REACTIONS (3)
  - DYSPNOEA [None]
  - INFLUENZA LIKE ILLNESS [None]
  - NAUSEA [None]
